FAERS Safety Report 6851335-4 (Version None)
Quarter: 2010Q3

REPORT INFORMATION
  Report Type: 
  Country: None (occurrence: None)
  Receive Date: 20100717
  Receipt Date: 20080125
  Transmission Date: 20110219
  Serious: No
  Sender: FDA-Public Use
  Company Number: US-PFIZER INC-2008006368

PATIENT
  Age: 48 Year
  Sex: Male
  Weight: 90.9 kg

DRUGS (2)
  1. CHANTIX [Suspect]
     Indication: SMOKING CESSATION THERAPY
     Dates: start: 20080108
  2. DRUG, UNSPECIFIED [Concomitant]
     Indication: GOUT

REACTIONS (2)
  - DRUG DOSE OMISSION [None]
  - SOMNOLENCE [None]
